FAERS Safety Report 8778415 (Version 5)
Quarter: 2014Q1

REPORT INFORMATION
  Report Type: Spontaneous
  Country: US (occurrence: US)
  Receive Date: 20120912
  Receipt Date: 20140306
  Transmission Date: 20141002
  Serious: Yes (Hospitalization)
  Sender: FDA-Public Use
  Company Number: US-GLAXOSMITHKLINE-A0992818A

PATIENT
  Age: 55 Year
  Sex: Female

DRUGS (3)
  1. FLOLAN [Suspect]
     Indication: PULMONARY ARTERIAL HYPERTENSION
     Dosage: 47NGKM CONTINUOUS
     Route: 042
     Dates: start: 20000303
  2. COUMADIN [Concomitant]
  3. LASIX [Concomitant]

REACTIONS (7)
  - Loss of consciousness [Unknown]
  - Foot fracture [Unknown]
  - Concussion [Unknown]
  - Nasopharyngitis [Unknown]
  - Bronchitis [Unknown]
  - Medical device complication [Recovered/Resolved]
  - Catheter placement [Unknown]
